FAERS Safety Report 13986152 (Version 2)
Quarter: 2017Q3

REPORT INFORMATION
  Report Type: Spontaneous
  Country: FR (occurrence: FR)
  Receive Date: 20170919
  Receipt Date: 20170927
  Transmission Date: 20171128
  Serious: Yes (Other)
  Sender: FDA-Public Use
  Company Number: PHHY2017FR135285

PATIENT
  Age: 51 Year
  Sex: Female

DRUGS (2)
  1. DERMOVAL [Concomitant]
     Active Substance: CLOBETASOL
     Indication: LICHEN PLANUS
     Route: 065
  2. COSENTYX [Suspect]
     Active Substance: SECUKINUMAB
     Indication: SAPHO SYNDROME
     Dosage: 2 DF, QMO
     Route: 058
     Dates: start: 201611, end: 201704

REACTIONS (1)
  - Vulvar dysplasia [Recovered/Resolved]

NARRATIVE: CASE EVENT DATE: 201703
